FAERS Safety Report 17918134 (Version 2)
Quarter: 2020Q4

REPORT INFORMATION
  Report Type: Spontaneous
  Country: US (occurrence: US)
  Receive Date: 20200619
  Receipt Date: 20201230
  Transmission Date: 20210113
  Serious: No
  Sender: FDA-Public Use
  Company Number: NVSC2020US171923

PATIENT
  Age: 64 Year
  Sex: Female

DRUGS (1)
  1. VOTRIENT [Suspect]
     Active Substance: PAZOPANIB HYDROCHLORIDE
     Indication: RENAL CANCER
     Dosage: 400 MG, QD (TO AS CURRENT)
     Route: 048
     Dates: start: 20200419

REACTIONS (3)
  - Abdominal pain upper [Unknown]
  - Ageusia [Unknown]
  - Fatigue [Unknown]

NARRATIVE: CASE EVENT DATE: 202005
